FAERS Safety Report 12060335 (Version 6)
Quarter: 2016Q2

REPORT INFORMATION
  Report Type: Report from Study
  Country: NL (occurrence: NL)
  Receive Date: 20160210
  Receipt Date: 20160502
  Transmission Date: 20160815
  Serious: Yes (Hospitalization, Other)
  Sender: FDA-Public Use
  Company Number: NL-TEVA-632017ISR

PATIENT
  Age: 28 Year
  Sex: Female

DRUGS (6)
  1. PREDNISONE 40MG [Concomitant]
     Dosage: 40 MILLIGRAM DAILY;
     Route: 048
  2. AMOXICILLIN. [Concomitant]
     Active Substance: AMOXICILLIN
     Dosage: 3 DOSAGE FORMS DAILY;
     Route: 048
  3. VITAMINE D [Concomitant]
  4. COPAXONE [Suspect]
     Active Substance: GLATIRAMER ACETATE
     Indication: MULTIPLE SCLEROSIS
     Route: 058
     Dates: start: 20151225, end: 20160311
  5. FLUIMUCIL [Concomitant]
     Active Substance: ACETYLCYSTEINE
     Route: 065
  6. COMBIVENT VERNEVELAAR [Concomitant]
     Route: 065

REACTIONS (6)
  - Sinus disorder [Recovering/Resolving]
  - Pneumonia [Recovering/Resolving]
  - Vomiting [Not Recovered/Not Resolved]
  - Abnormal loss of weight [Not Recovered/Not Resolved]
  - Helicobacter infection [Not Recovered/Not Resolved]
  - Chest discomfort [Recovering/Resolving]

NARRATIVE: CASE EVENT DATE: 20160127
